FAERS Safety Report 6414980-6 (Version None)
Quarter: 2009Q4

REPORT INFORMATION
  Report Type: 
  Country: None (occurrence: None)
  Receive Date: 20091026
  Receipt Date: 20090106
  Transmission Date: 20100525
  Serious: No
  Sender: FDA-Public Use
  Company Number: US-ABBOTT-09P-163-0496022-00

PATIENT
  Sex: Female
  Weight: 59.02 kg

DRUGS (6)
  1. LUPRON DEPOT [Suspect]
     Indication: ENDOMETRIOSIS
     Route: 030
     Dates: start: 20040901, end: 20050101
  2. LUPRON DEPOT [Suspect]
     Dosage: 1 MOS DOSE
     Route: 030
     Dates: start: 20080801, end: 20080801
  3. LUPRON DEPOT [Suspect]
     Route: 030
     Dates: start: 20080901, end: 20080901
  4. CALCIUM [Concomitant]
     Indication: BONE DISORDER
     Route: 048
  5. MULTI-VITAMIN [Concomitant]
     Indication: VITAMIN SUPPLEMENTATION
     Route: 048
  6. LEXAPRO [Concomitant]
     Indication: ANXIETY
     Route: 048

REACTIONS (3)
  - ANXIETY [None]
  - DIZZINESS [None]
  - HOT FLUSH [None]
